FAERS Safety Report 9689324 (Version 2)
Quarter: 2014Q4

REPORT INFORMATION
  Report Type: Report from Study
  Country: US (occurrence: US)
  Receive Date: 20131114
  Receipt Date: 20141024
  Transmission Date: 20150529
  Serious: No
  Sender: FDA-Public Use
  Company Number: US-VERTEX PHARMACEUTICALS INC-2013-011027

PATIENT
  Sex: Female

DRUGS (1)
  1. IVACAFTOR [Suspect]
     Active Substance: IVACAFTOR
     Indication: CYSTIC FIBROSIS
     Dosage: UNK
     Route: 065
     Dates: start: 20130212

REACTIONS (3)
  - Gastrointestinal disorder [Unknown]
  - Abdominal discomfort [Unknown]
  - Vascular calcification [Unknown]

NARRATIVE: CASE EVENT DATE: 2013
